FAERS Safety Report 21002051 (Version 1)
Quarter: 2022Q2

REPORT INFORMATION
  Report Type: Other
  Country: US (occurrence: None)
  Receive Date: 20220624
  Receipt Date: 20220624
  Transmission Date: 20220720
  Serious: Yes (Hospitalization)
  Sender: FDA-Public Use
  Company Number: US-ROCHE-3118328

PATIENT
  Age: 54 Year
  Sex: Female
  Weight: 113.50 kg

DRUGS (5)
  1. OCREVUS [Suspect]
     Active Substance: OCRELIZUMAB
     Indication: Primary progressive multiple sclerosis
     Dosage: INFUSE 300MG  AT DAY 1 THEN 300MG IV DAY 15
     Route: 042
  2. LYRICA [Concomitant]
     Active Substance: PREGABALIN
  3. BACLOFEN [Concomitant]
     Active Substance: BACLOFEN
  4. CITALOPRAM [Concomitant]
     Active Substance: CITALOPRAM HYDROBROMIDE
  5. LEVOTHYROXINE [Concomitant]
     Active Substance: LEVOTHYROXINE

REACTIONS (2)
  - COVID-19 [Recovered/Resolved]
  - Back pain [Not Recovered/Not Resolved]

NARRATIVE: CASE EVENT DATE: 20210801
